FAERS Safety Report 10129268 (Version 1)
Quarter: 2014Q2

REPORT INFORMATION
  Report Type: Spontaneous
  Country: US (occurrence: US)
  Receive Date: 20140428
  Receipt Date: 20140428
  Transmission Date: 20141212
  Serious: No
  Sender: FDA-Public Use
  Company Number: US-ABBVIE-14P-163-1205758-00

PATIENT
  Age: 58 Year
  Sex: Male
  Weight: 98.52 kg

DRUGS (8)
  1. ANDROGEL [Suspect]
     Indication: BLOOD TESTOSTERONE DECREASED
     Dosage: 2 PUMPS DAILY
     Route: 061
     Dates: start: 2011, end: 2011
  2. ANDROGEL [Suspect]
     Dosage: 4 PUMPS DAILY
     Route: 061
     Dates: start: 2011
  3. METFORMIN [Concomitant]
     Indication: DIABETES MELLITUS
  4. CARVEDILOL [Concomitant]
     Indication: HYPERTENSION
  5. SIMVASTATIN [Concomitant]
     Indication: BLOOD CHOLESTEROL INCREASED
  6. RAMIPRIL [Concomitant]
     Indication: HYPERTENSION
  7. CLOPIDOGREL [Concomitant]
     Indication: ANTICOAGULANT THERAPY
  8. ASPIRIN [Concomitant]
     Indication: ANTICOAGULANT THERAPY

REACTIONS (1)
  - Incorrect dose administered [Not Recovered/Not Resolved]
